FAERS Safety Report 7386230-8 (Version None)
Quarter: 2011Q1

REPORT INFORMATION
  Report Type: 
  Country: None (occurrence: None)
  Receive Date: 20110331
  Receipt Date: 20110317
  Transmission Date: 20110831
  Serious: Yes (Hospitalization)
  Sender: FDA-Public Use
  Company Number: US-JNJFOC-20110203586

PATIENT
  Sex: Female
  Weight: 63.5 kg

DRUGS (10)
  1. REMICADE [Suspect]
     Dosage: 3 INFUSIONS
     Route: 042
  2. ACETAMINOPHEN [Concomitant]
     Indication: PREMEDICATION
     Route: 065
  3. REMICADE [Suspect]
     Indication: CROHN'S DISEASE
     Dosage: 6 INFUSIONS PRIOR TO BASELINE
     Route: 042
  4. REMICADE [Suspect]
     Dosage: TOTAL 21 INFUSIONS
     Route: 042
  5. REMICADE [Suspect]
     Dosage: 8 INFUSOINS
     Route: 042
  6. METHOTREXATE [Concomitant]
     Indication: CROHN'S DISEASE
     Route: 065
  7. MERCAPTOPURINE [Concomitant]
     Indication: CROHN'S DISEASE
     Route: 065
  8. STEROIDS NOS [Concomitant]
     Indication: PREMEDICATION
     Route: 065
  9. ADALIMUMAB [Concomitant]
  10. ANTIHISTAMINES [Concomitant]
     Indication: PREMEDICATION
     Route: 065

REACTIONS (3)
  - CLOSTRIDIAL INFECTION [None]
  - ANAL FISTULA [None]
  - CROHN'S DISEASE [None]
